FAERS Safety Report 10623195 (Version 2)
Quarter: 2014Q4

REPORT INFORMATION
  Report Type: Spontaneous
  Country: AU (occurrence: AU)
  Receive Date: 20141203
  Receipt Date: 20141203
  Transmission Date: 20150529
  Serious: Yes (Other)
  Sender: FDA-Public Use
  Company Number: AU-GLAXOSMITHKLINE-AU2014GSK027834

PATIENT
  Age: 69 Year
  Sex: Male

DRUGS (2)
  1. TAFINLAR [Concomitant]
     Active Substance: DABRAFENIB MESYLATE
     Indication: MALIGNANT MELANOMA
  2. MEKINIST [Suspect]
     Active Substance: TRAMETINIB DIMETHYL SULFOXIDE
     Indication: MALIGNANT MELANOMA
     Dosage: 2 MG, UNK
     Dates: start: 201409, end: 201411

REACTIONS (1)
  - Neutropenia [Recovering/Resolving]

NARRATIVE: CASE EVENT DATE: 20141117
